FAERS Safety Report 5237251-2 (Version None)
Quarter: 2007Q1

REPORT INFORMATION
  Report Type: 
  Country: None (occurrence: None)
  Receive Date: 20070213
  Receipt Date: 20070130
  Transmission Date: 20070707
  Serious: Yes (Other)
  Sender: FDA-Public Use
  Company Number: US-ROCHE-448987

PATIENT
  Age: 55 Year
  Sex: Female

DRUGS (2)
  1. PEGASYS [Suspect]
     Route: 065
     Dates: start: 20051210
  2. RIBAVIRIN [Suspect]
     Route: 048
     Dates: start: 20051210

REACTIONS (10)
  - BREAST MASS [None]
  - COUGH [None]
  - DRY SKIN [None]
  - DYSPEPSIA [None]
  - DYSPNOEA [None]
  - ECZEMA [None]
  - FATIGUE [None]
  - MEMORY IMPAIRMENT [None]
  - VISION BLURRED [None]
  - WEIGHT DECREASED [None]
